FAERS Safety Report 15724089 (Version 1)
Quarter: 2018Q4

REPORT INFORMATION
  Report Type: Spontaneous
  Country: US (occurrence: US)
  Receive Date: 20181214
  Receipt Date: 20181214
  Transmission Date: 20190205
  Serious: No
  Sender: FDA-Public Use
  Company Number: US-ASTRAZENECA-2018SF62471

PATIENT
  Age: 53 Year
  Sex: Female

DRUGS (2)
  1. PRILOSEC OTC [Suspect]
     Active Substance: OMEPRAZOLE MAGNESIUM
     Indication: ILL-DEFINED DISORDER
     Dosage: 1 TABLET, 1 /DAY FOR 1 DAY
     Route: 048
     Dates: start: 20180116, end: 20180116
  2. PRILOSEC OTC [Suspect]
     Active Substance: OMEPRAZOLE MAGNESIUM
     Indication: ILL-DEFINED DISORDER
     Dosage: 1 TABLET, 2 /DAY FOR 7 DAYS
     Route: 048
     Dates: start: 20180108, end: 20180115

REACTIONS (7)
  - Eructation [Not Recovered/Not Resolved]
  - Diarrhoea [Not Recovered/Not Resolved]
  - Prescribed overdose [Unknown]
  - Flatulence [Not Recovered/Not Resolved]
  - Off label use [Unknown]
  - Inappropriate schedule of product administration [Unknown]
  - Faeces discoloured [Not Recovered/Not Resolved]

NARRATIVE: CASE EVENT DATE: 201801
